FAERS Safety Report 8338017-7 (Version None)
Quarter: 2012Q2

REPORT INFORMATION
  Report Type: 
  Country: None (occurrence: None)
  Receive Date: 20120504
  Receipt Date: 20120501
  Transmission Date: 20120825
  Serious: Yes (Other)
  Sender: FDA-Public Use
  Company Number: US-ABBOTT-12P-163-0931258-00

PATIENT
  Sex: Female

DRUGS (1)
  1. ANDROGEL [Suspect]
     Indication: PRODUCT USED FOR UNKNOWN INDICATION
     Dosage: PACKETS

REACTIONS (4)
  - RASH [None]
  - BREAST CANCER [None]
  - ACCIDENTAL EXPOSURE [None]
  - EXPOSURE VIA DIRECT CONTACT [None]
